FAERS Safety Report 10662184 (Version 4)
Quarter: 2015Q4

REPORT INFORMATION
  Report Type: Spontaneous
  Country: US (occurrence: US)
  Receive Date: 20141218
  Receipt Date: 20151120
  Transmission Date: 20160304
  Serious: Yes (Hospitalization, Disabling)
  Sender: FDA-Public Use
  Company Number: US-009507513-1412USA007981

PATIENT
  Sex: Female
  Weight: 77.98 kg

DRUGS (1)
  1. IMPLANON [Suspect]
     Active Substance: ETONOGESTREL
     Indication: CONTRACEPTION
     Dosage: UNK UNK, UNKNOWN
     Route: 059
     Dates: start: 20120214

REACTIONS (14)
  - Coital bleeding [Recovered/Resolved]
  - Back pain [Recovered/Resolved]
  - Premature separation of placenta [Unknown]
  - Anaemia of pregnancy [Unknown]
  - Dysuria [Unknown]
  - Medical device complication [Unknown]
  - Muscle spasms [Recovered/Resolved]
  - Unintended pregnancy [Recovered/Resolved]
  - Gestational diabetes [Unknown]
  - Anxiety [Not Recovered/Not Resolved]
  - Blood urine present [Recovered/Resolved]
  - Blood glucose decreased [Unknown]
  - Medical device complication [Not Recovered/Not Resolved]
  - Constipation [Unknown]

NARRATIVE: CASE EVENT DATE: 2012
